FAERS Safety Report 9702143 (Version 2)
Quarter: 2013Q4

REPORT INFORMATION
  Report Type: Report from Study
  Country: US (occurrence: US)
  Receive Date: 20131121
  Receipt Date: 20131209
  Transmission Date: 20140711
  Serious: Yes (Hospitalization, Other)
  Sender: FDA-Public Use
  Company Number: US-ALEXION PHARMACEUTICALS INC.-A201303719

PATIENT
  Age: 27 Year
  Sex: Female

DRUGS (2)
  1. SOLIRIS [Suspect]
     Indication: HAEMOLYTIC URAEMIC SYNDROME
     Dosage: UNK
     Route: 042
     Dates: start: 20120403
  2. SOLIRIS [Suspect]
     Dosage: 1500 MG, QW
     Route: 042
     Dates: start: 20130419

REACTIONS (12)
  - Hepatic steatosis [Not Recovered/Not Resolved]
  - Dehydration [Unknown]
  - Intestine transplant rejection [Unknown]
  - Pancreatitis [Recovering/Resolving]
  - Intestinal obstruction [Unknown]
  - Dizziness [Unknown]
  - Nausea [Not Recovered/Not Resolved]
  - Abdominal pain [Not Recovered/Not Resolved]
  - Asthenia [Unknown]
  - Back pain [Unknown]
  - Incorrect dose administered [Not Recovered/Not Resolved]
  - Laboratory test abnormal [Recovering/Resolving]
